FAERS Safety Report 20532194 (Version 4)
Quarter: 2022Q3

REPORT INFORMATION
  Report Type: Spontaneous
  Country: US (occurrence: US)
  Receive Date: 20220301
  Receipt Date: 20220902
  Transmission Date: 20221027
  Serious: No
  Sender: FDA-Public Use
  Company Number: US-PFIZER INC-2021397100

PATIENT
  Age: 72 Year
  Sex: Female

DRUGS (4)
  1. XELJANZ [Suspect]
     Active Substance: TOFACITINIB CITRATE
     Indication: Seizure
     Dosage: 5 MG, 2X/DAY
  2. XELJANZ [Suspect]
     Active Substance: TOFACITINIB CITRATE
     Indication: Arthritis
  3. XELJANZ [Suspect]
     Active Substance: TOFACITINIB CITRATE
     Indication: Osteoporosis
  4. XELJANZ [Suspect]
     Active Substance: TOFACITINIB CITRATE
     Indication: Rheumatoid arthritis

REACTIONS (5)
  - Peripheral swelling [Unknown]
  - Sensitivity to weather change [Unknown]
  - Nasopharyngitis [Unknown]
  - Joint swelling [Unknown]
  - Therapeutic product effect incomplete [Unknown]
